FAERS Safety Report 4810398-8 (Version None)
Quarter: 2005Q4

REPORT INFORMATION
  Report Type: 
  Country: None (occurrence: None)
  Receive Date: 20051024
  Receipt Date: 20051006
  Transmission Date: 20060501
  Serious: Yes (Other)
  Sender: FDA-Public Use
  Company Number: 12562

PATIENT
  Age: 49 Year
  Sex: Female

DRUGS (9)
  1. CARBOPLATIN [Suspect]
     Indication: CHEMOTHERAPY
  2. PROPOFOL [Suspect]
     Indication: GENERAL ANAESTHESIA
  3. CISPLATIN [Suspect]
     Indication: CHEMOTHERAPY
  4. ETOPOSIDE [Suspect]
     Indication: CHEMOTHERAPY
  5. FENTANYL [Suspect]
     Indication: GENERAL ANAESTHESIA
  6. MORPHINE [Suspect]
     Indication: GENERAL ANAESTHESIA
  7. TAXOL [Concomitant]
     Indication: CHEMOTHERAPY
  8. GEMCITABINE [Concomitant]
     Indication: CHEMOTHERAPY
  9. PROPRANOLOL [Concomitant]

REACTIONS (8)
  - CONFUSIONAL STATE [None]
  - DRUG INTERACTION [None]
  - ENCEPHALOPATHY [None]
  - GRAND MAL CONVULSION [None]
  - HEADACHE [None]
  - HYSTERECTOMY [None]
  - OOPHORECTOMY [None]
  - VISUAL DISTURBANCE [None]
